FAERS Safety Report 8437538-6 (Version None)
Quarter: 2012Q2

REPORT INFORMATION
  Report Type: 
  Country: None (occurrence: None)
  Receive Date: 20120614
  Receipt Date: 20120417
  Transmission Date: 20120825
  Serious: Yes (Hospitalization)
  Sender: FDA-Public Use
  Company Number: US-AMGEN-USASP2012024233

PATIENT
  Sex: Female

DRUGS (9)
  1. CLONAZEPAM [Concomitant]
  2. PROLIA [Suspect]
     Indication: OSTEOPOROSIS POSTMENOPAUSAL
     Dates: start: 20120131
  3. CENTRUM SILVER                     /01292501/ [Concomitant]
  4. COLACE [Concomitant]
  5. TOPROL-XL [Concomitant]
  6. PAXIL [Concomitant]
  7. REMERON [Concomitant]
  8. SIMVASTATIN [Concomitant]
     Dosage: 1 UNK, UNK
  9. OMEPRAZOLE [Concomitant]

REACTIONS (1)
  - CYSTITIS [None]
